FAERS Safety Report 7693963-2 (Version None)
Quarter: 2011Q3

REPORT INFORMATION
  Report Type: 
  Country: None (occurrence: None)
  Receive Date: 20110819
  Receipt Date: 20110816
  Transmission Date: 20111222
  Serious: Yes (Death, Hospitalization)
  Sender: FDA-Public Use
  Company Number: US-SANOFI-AVENTIS-2011SA046601

PATIENT
  Age: 72 Year
  Sex: Male
  Weight: 73 kg

DRUGS (7)
  1. DIGOXIN [Concomitant]
  2. KEPPRA [Concomitant]
  3. COREG [Concomitant]
  4. VALSARTAN [Concomitant]
  5. INSPRA [Concomitant]
  6. LASIX [Concomitant]
  7. MULTAQ [Suspect]
     Route: 048

REACTIONS (5)
  - ACUTE LEUKAEMIA [None]
  - CONDITION AGGRAVATED [None]
  - DEATH [None]
  - OFF LABEL USE [None]
  - ABDOMINAL PAIN UPPER [None]
